FAERS Safety Report 6597605-9 (Version None)
Quarter: 2010Q1

REPORT INFORMATION
  Report Type: 
  Country: None (occurrence: None)
  Receive Date: 20100223
  Receipt Date: 20100209
  Transmission Date: 20100710
  Serious: Yes (Other)
  Sender: FDA-Public Use
  Company Number: US-B.I. PHARMACEUTICALS,INC./RIDGEFIELD-2010-DE-00696GD

PATIENT
  Age: 47 Year
  Sex: Female

DRUGS (1)
  1. PRAMIPEXOLE DIHYDROCHLORIDE [Suspect]
     Indication: RESTLESS LEGS SYNDROME
     Dosage: 0.5 MG

REACTIONS (4)
  - BINGE EATING [None]
  - COMPULSIVE SHOPPING [None]
  - HYPERSEXUALITY [None]
  - STEREOTYPY [None]
